FAERS Safety Report 19186620 (Version 2)
Quarter: 2021Q2

REPORT INFORMATION
  Report Type: Spontaneous
  Country: IT (occurrence: IT)
  Receive Date: 20210428
  Receipt Date: 20210510
  Transmission Date: 20210717
  Serious: Yes (Other)
  Sender: FDA-Public Use
  Company Number: IT-SAMSUNG BIOEPIS-SB-2021-10016

PATIENT
  Age: 42 Year
  Sex: Female
  Weight: 62 kg

DRUGS (3)
  1. DOSTINEX [Concomitant]
     Active Substance: CABERGOLINE
     Indication: PRODUCT USED FOR UNKNOWN INDICATION
     Route: 065
  2. IMRALDI [Suspect]
     Active Substance: ADALIMUMAB
     Indication: ANKYLOSING SPONDYLITIS
     Route: 058
     Dates: start: 20201001, end: 20210129
  3. BENTELAN [Concomitant]
     Active Substance: BETAMETHASONE SODIUM PHOSPHATE
     Indication: BACK PAIN
     Route: 065

REACTIONS (6)
  - Dermatitis psoriasiform [Recovering/Resolving]
  - Uveitis [Recovering/Resolving]
  - Therapeutic response changed [Recovering/Resolving]
  - Headache [Recovering/Resolving]
  - Product substitution issue [Unknown]
  - Product substitution [Recovering/Resolving]

NARRATIVE: CASE EVENT DATE: 20210129
